FAERS Safety Report 11960369 (Version 2)
Quarter: 2018Q1

REPORT INFORMATION
  Report Type: Spontaneous
  Country: US (occurrence: US)
  Receive Date: 20160126
  Receipt Date: 20180125
  Transmission Date: 20180508
  Serious: Yes (Other)
  Sender: FDA-Public Use
  Company Number: US-ABBVIE-15K-163-1361383-00

PATIENT
  Age: 49 Year
  Sex: Female
  Weight: 54.48 kg

DRUGS (2)
  1. ADVAIR HFA [Concomitant]
     Active Substance: FLUTICASONE PROPIONATE\SALMETEROL XINAFOATE
     Indication: ASTHMA
  2. HUMIRA [Suspect]
     Active Substance: ADALIMUMAB
     Indication: PSORIASIS
     Route: 058
     Dates: start: 2010, end: 201501

REACTIONS (18)
  - Stomatitis [Unknown]
  - Renal cyst [Unknown]
  - Erythema [Unknown]
  - Osteopenia [Unknown]
  - White blood cell count decreased [Unknown]
  - Pulmonary fibrosis [Unknown]
  - Ageusia [Unknown]
  - Diverticulum intestinal [Not Recovered/Not Resolved]
  - Red blood cell sedimentation rate decreased [Unknown]
  - Hodgkin^s disease mixed cellularity stage I site unspecified [Not Recovered/Not Resolved]
  - Atelectasis [Unknown]
  - Gastrointestinal wall thickening [Unknown]
  - Alopecia [Unknown]
  - Umbilical hernia [Unknown]
  - Malaise [Unknown]
  - Radiation mucositis [Unknown]
  - Arteriosclerosis coronary artery [Unknown]
  - Acute sinusitis [Unknown]

NARRATIVE: CASE EVENT DATE: 201410
